FAERS Safety Report 18300431 (Version 2)
Quarter: 2021Q3

REPORT INFORMATION
  Report Type: Spontaneous
  Country: US (occurrence: US)
  Receive Date: 20200923
  Receipt Date: 20210721
  Transmission Date: 20211014
  Serious: Yes (Other)
  Sender: FDA-Public Use
  Company Number: US-SA-2020SA257406

PATIENT
  Age: 87 Year
  Sex: Female

DRUGS (1)
  1. ZANTAC [Suspect]
     Active Substance: RANITIDINE HYDROCHLORIDE
     Indication: DYSPEPSIA
     Dosage: UNK
     Dates: start: 200501, end: 201212

REACTIONS (2)
  - Colorectal cancer [Unknown]
  - Colon cancer [Unknown]

NARRATIVE: CASE EVENT DATE: 201212
